FAERS Safety Report 14022452 (Version 1)
Quarter: 2017Q3

REPORT INFORMATION
  Report Type: Spontaneous
  Country: HR (occurrence: HR)
  Receive Date: 20170928
  Receipt Date: 20170928
  Transmission Date: 20171128
  Serious: Yes (Other)
  Sender: FDA-Public Use
  Company Number: HR-ASTRAZENECA-2017SE97619

PATIENT
  Sex: Female

DRUGS (3)
  1. LETROZOLE. [Suspect]
     Active Substance: LETROZOLE
     Indication: OESTROGEN RECEPTOR POSITIVE BREAST CANCER
     Route: 065
     Dates: start: 201606, end: 201705
  2. ZOMETA [Suspect]
     Active Substance: ZOLEDRONIC ACID
     Indication: OESTROGEN RECEPTOR POSITIVE BREAST CANCER
     Route: 065
     Dates: start: 201607
  3. FULVESTRANT. [Suspect]
     Active Substance: FULVESTRANT
     Indication: OESTROGEN RECEPTOR POSITIVE BREAST CANCER
     Route: 030
     Dates: start: 20170601

REACTIONS (2)
  - Breast cancer [Not Recovered/Not Resolved]
  - Malignant neoplasm progression [Not Recovered/Not Resolved]
